FAERS Safety Report 5919835-9 (Version None)
Quarter: 2008Q4

REPORT INFORMATION
  Report Type: 
  Country: None (occurrence: None)
  Receive Date: 20081015
  Receipt Date: 20081007
  Transmission Date: 20090506
  Serious: Yes (Hospitalization)
  Sender: FDA-Public Use
  Company Number: JP-PFIZER INC-2008076410

PATIENT
  Sex: Female
  Weight: 43 kg

DRUGS (1)
  1. SU-011,248 [Suspect]
     Indication: GASTROINTESTINAL STROMAL TUMOUR
     Route: 048
     Dates: start: 20080717, end: 20080729

REACTIONS (5)
  - HYPERTENSION [None]
  - HYPOALBUMINAEMIA [None]
  - PLATELET COUNT DECREASED [None]
  - RENAL IMPAIRMENT [None]
  - WHITE BLOOD CELL COUNT DECREASED [None]
